FAERS Safety Report 7214391-X (Version None)
Quarter: 2010Q4

REPORT INFORMATION
  Report Type: 
  Country: None (occurrence: None)
  Receive Date: 20101230
  Receipt Date: 20101221
  Transmission Date: 20110411
  Serious: Yes (Death)
  Sender: FDA-Public Use
  Company Number: 2010176313

PATIENT
  Age: 55 Year
  Sex: Female

DRUGS (8)
  1. DALTEPARIN SODIUM [Suspect]
     Indication: LUNG NEOPLASM MALIGNANT
     Dates: start: 20101123
  2. MORPHINE SULFATE INJ [Concomitant]
  3. CITALOPRAM HYDROBROMIDE [Concomitant]
  4. ATORVASTATIN (ATORVASTATIN) [Concomitant]
  5. METFORMIN HCL [Concomitant]
  6. OMEPRAZOLE [Concomitant]
  7. INSULIN GLARGINE (INSULIN GLARGINE) [Concomitant]
  8. INSULIN ASPART (INSULIN ASPART) [Concomitant]

REACTIONS (9)
  - BLOOD FIBRINOGEN DECREASED [None]
  - C-REACTIVE PROTEIN INCREASED [None]
  - CIRCULATORY COLLAPSE [None]
  - HAEMATOCRIT DECREASED [None]
  - HAEMORRHAGE [None]
  - MEAN CELL VOLUME DECREASED [None]
  - PLATELET COUNT ABNORMAL [None]
  - PROTHROMBIN TIME RATIO INCREASED [None]
  - REFUSAL OF TREATMENT BY PATIENT [None]
